FAERS Safety Report 8140967-1 (Version None)
Quarter: 2012Q1

REPORT INFORMATION
  Report Type: 
  Country: None (occurrence: None)
  Receive Date: 20120216
  Receipt Date: 20120208
  Transmission Date: 20120608
  Serious: Yes (Congenital Anomaly, Other)
  Sender: FDA-Public Use
  Company Number: GXKR2012DE000793

PATIENT

DRUGS (4)
  1. THYROXIN [Concomitant]
     Route: 064
  2. FRISIUM [Suspect]
     Dosage: MATERNAL DOSE: 7.5 [MG/D (3 X 2.5 MG/D) ]
     Route: 064
  3. LAMOTRIGINE [Suspect]
     Dosage: MATERNAL DOSE: 375 [MG/D ]/ TIL 20100928: 150 MG/D, THEN SLOWLY INCREASED TO 375 MG/D
     Route: 064
  4. FOLIC ACID [Concomitant]
     Dosage: MATERNAL DOSE: 5 [MG/D ]
     Route: 064

REACTIONS (8)
  - MYOCLONUS [None]
  - FEEDING DISORDER NEONATAL [None]
  - ATRIAL SEPTAL DEFECT [None]
  - PREMATURE BABY [None]
  - VENTRICULAR SEPTAL DEFECT [None]
  - FOETAL EXPOSURE DURING PREGNANCY [None]
  - CONGENITAL CHOROID PLEXUS CYST [None]
  - CARDIAC ANEURYSM [None]
